FAERS Safety Report 12641573 (Version 5)
Quarter: 2016Q4

REPORT INFORMATION
  Report Type: Spontaneous
  Country: DE (occurrence: DE)
  Receive Date: 20160810
  Receipt Date: 20161026
  Transmission Date: 20170207
  Serious: Yes (Life-Threatening)
  Sender: FDA-Public Use
  Company Number: DE-ELI_LILLY_AND_COMPANY-DE201608002657

PATIENT
  Age: 55 Year
  Sex: Female
  Weight: 86 kg

DRUGS (5)
  1. HUMALOG [Suspect]
     Active Substance: INSULIN LISPRO
     Dosage: 3-4 U, EVERY HOUR
     Route: 058
  2. HUMALOG [Suspect]
     Active Substance: INSULIN LISPRO
     Dosage: UNK, UNKNOWN
     Route: 058
  3. HUMALOG [Suspect]
     Active Substance: INSULIN LISPRO
     Dosage: UNK UNK, UNKNOWN
     Route: 058
  4. HUMALOG [Suspect]
     Active Substance: INSULIN LISPRO
     Dosage: 40 IU, QD
     Route: 058
     Dates: start: 20160516, end: 20160627
  5. HUMALOG [Suspect]
     Active Substance: INSULIN LISPRO
     Indication: DIABETES MELLITUS
     Dosage: UNK, UNKNOWN
     Route: 065
     Dates: start: 2006

REACTIONS (24)
  - Hypokinesia [Unknown]
  - Back pain [Unknown]
  - Influenza like illness [Unknown]
  - Nausea [Unknown]
  - Decreased appetite [Unknown]
  - Depression [Unknown]
  - Blood glucose increased [Recovered/Resolved]
  - Pain in extremity [Unknown]
  - Micturition urgency [Unknown]
  - Blood glucose increased [Unknown]
  - Malaise [Unknown]
  - Somnolence [Unknown]
  - Expired product administered [Unknown]
  - Hypoglycaemia [Unknown]
  - Thinking abnormal [Unknown]
  - Peripheral coldness [Unknown]
  - Muscle spasms [Unknown]
  - Mental impairment [Unknown]
  - Disturbance in attention [Unknown]
  - Fatigue [Unknown]
  - Headache [Unknown]
  - Sleep disorder [Unknown]
  - Glycosylated haemoglobin increased [Unknown]
  - Abnormal behaviour [Unknown]

NARRATIVE: CASE EVENT DATE: 20160624
